FAERS Safety Report 21282022 (Version 1)
Quarter: 2022Q3

REPORT INFORMATION
  Report Type: Spontaneous
  Country: US (occurrence: US)
  Receive Date: 20220901
  Receipt Date: 20220901
  Transmission Date: 20221026
  Serious: No
  Sender: FDA-Public Use
  Company Number: US-ABBVIE-22K-163-4501039-00

PATIENT
  Age: 74 Year
  Sex: Female

DRUGS (1)
  1. HUMIRA [Suspect]
     Active Substance: ADALIMUMAB
     Indication: Psoriatic arthropathy
     Route: 058

REACTIONS (6)
  - Device issue [Recovered/Resolved]
  - Frustration tolerance decreased [Unknown]
  - Anxiety [Unknown]
  - Unevaluable event [Unknown]
  - Unevaluable event [Unknown]
  - Discomfort [Unknown]

NARRATIVE: CASE EVENT DATE: 20220810
